FAERS Safety Report 4881006-5 (Version None)
Quarter: 2005Q4

REPORT INFORMATION
  Report Type: 
  Country: None (occurrence: None)
  Receive Date: 20051223
  Receipt Date: 20050927
  Transmission Date: 20060501
  Serious: Yes (Hospitalization)
  Sender: FDA-Public Use
  Company Number: 05P-163-0312097

PATIENT
  Age: 74 Year
  Sex: Female
  Weight: 63.5036 kg

DRUGS (13)
  1. HUMIRA [Suspect]
     Indication: RHEUMATOID ARTHRITIS
     Dosage: 40 MG, 1 IN 2 WK, SUBCUTANEOUS
     Route: 058
     Dates: start: 20040501
  2. PREDNISONE [Concomitant]
  3. PARACETAMOL [Concomitant]
  4. TYLENOL (CAPLET) [Concomitant]
  5. K CARE [Concomitant]
  6. WARFARIN [Concomitant]
  7. CYMBALTA [Concomitant]
  8. LEVOTHYROXINE SODIUM [Concomitant]
  9. BENAZEPRIL HYDROCHLORIDE [Concomitant]
  10. AMLODIPINE BESYLATE [Concomitant]
  11. MULTIVITAMIN [Concomitant]
  12. OXYGEN [Concomitant]
  13. CRESTOR [Concomitant]

REACTIONS (2)
  - ATRIAL FIBRILLATION [None]
  - RHEUMATOID ARTHRITIS [None]
